FAERS Safety Report 16962214 (Version 1)
Quarter: 2019Q4

REPORT INFORMATION
  Report Type: Spontaneous
  Country: US (occurrence: US)
  Receive Date: 20190907
  Receipt Date: 20190907
  Transmission Date: 20200122
  Serious: No
  Sender: FDA-Public Use
  Company Number: None

PATIENT
  Age: 66 Year
  Sex: Female

DRUGS (4)
  1. CAPECITABINE TAB 500MG [Suspect]
     Active Substance: CAPECITABINE
     Indication: CHOLANGIOCARCINOMA
     Route: 048
     Dates: start: 201906
  2. ESCITALOPRAM [Concomitant]
     Active Substance: ESCITALOPRAM OXALATE
  3. ANASTROZOLE. [Concomitant]
     Active Substance: ANASTROZOLE
  4. LIDOCAINE. [Concomitant]
     Active Substance: LIDOCAINE

REACTIONS (2)
  - Blister [None]
  - Pain [None]

NARRATIVE: CASE EVENT DATE: 20190906
